FAERS Safety Report 24980810 (Version 4)
Quarter: 2025Q2

REPORT INFORMATION
  Report Type: Spontaneous
  Country: GB (occurrence: GB)
  Receive Date: 20250218
  Receipt Date: 20250414
  Transmission Date: 20250717
  Serious: Yes (Life-Threatening, Hospitalization, Other)
  Sender: MYLAN
  Company Number: GB-MYLANLABS-2025M1012718

PATIENT
  Sex: Male

DRUGS (2)
  1. CLOZAPINE [Suspect]
     Active Substance: CLOZAPINE
     Indication: Schizophrenia
  2. CHLORPROMAZINE [Concomitant]
     Active Substance: CHLORPROMAZINE

REACTIONS (8)
  - Agranulocytosis [Unknown]
  - Cellulitis [Unknown]
  - Neutropenia [Recovering/Resolving]
  - Leukopenia [Recovering/Resolving]
  - Haemoglobin decreased [Unknown]
  - Eosinophil count decreased [Not Recovered/Not Resolved]
  - Leukocytosis [Not Recovered/Not Resolved]
  - Neutrophilia [Not Recovered/Not Resolved]

NARRATIVE: CASE EVENT DATE: 20250113
